FAERS Safety Report 14317506 (Version 1)
Quarter: 2017Q4

REPORT INFORMATION
  Report Type: Spontaneous
  Country: US (occurrence: US)
  Receive Date: 20171222
  Receipt Date: 20171222
  Transmission Date: 20180321
  Serious: Yes (Hospitalization)
  Sender: FDA-Public Use
  Company Number: US-JNJFOC-20171227866

PATIENT
  Sex: Male
  Weight: 79.38 kg

DRUGS (2)
  1. RISPERDAL [Suspect]
     Active Substance: RISPERIDONE
     Indication: BIPOLAR DISORDER
     Dosage: BEGAN AT THE AGE OF 9
     Route: 048
     Dates: start: 1995, end: 2004
  2. RISPERDAL CONSTA [Suspect]
     Active Substance: RISPERIDONE
     Indication: BIPOLAR DISORDER
     Route: 030
     Dates: start: 2012, end: 2013

REACTIONS (7)
  - Lethargy [Unknown]
  - Product use issue [Unknown]
  - Hospitalisation [Unknown]
  - Treatment noncompliance [Unknown]
  - Product use in unapproved indication [Unknown]
  - Imprisonment [Unknown]
  - Confusional state [Unknown]

NARRATIVE: CASE EVENT DATE: 1995
